FAERS Safety Report 5803817-1 (Version None)
Quarter: 2008Q3

REPORT INFORMATION
  Report Type: 
  Country: None (occurrence: None)
  Receive Date: 20080708
  Receipt Date: 20080703
  Transmission Date: 20090109
  Serious: Yes (Other)
  Sender: FDA-Public Use
  Company Number: TR-BOEHRINGER INGELHEIM GMBH, GERMANY-2008-BP-10316RO

PATIENT
  Age: 22 Year
  Sex: Female

DRUGS (3)
  1. LITHIUM CARBONATE [Suspect]
     Indication: MANIA
  2. ZIPRASIDONE HCL [Suspect]
     Indication: MANIA
  3. ZIPRASIDONE HCL [Suspect]

REACTIONS (3)
  - DRUG INTERACTION [None]
  - GALACTORRHOEA [None]
  - HYPERPROLACTINAEMIA [None]
